FAERS Safety Report 16392977 (Version 1)
Quarter: 2019Q2

REPORT INFORMATION
  Report Type: Spontaneous
  Country: CA (occurrence: CA)
  Receive Date: 20190605
  Receipt Date: 20190605
  Transmission Date: 20190711
  Serious: Yes (Other)
  Sender: FDA-Public Use
  Company Number: CA-AUROBINDO-AUR-APL-2019-030671

PATIENT

DRUGS (4)
  1. CEPHALEXIN. [Concomitant]
     Active Substance: CEPHALEXIN
     Indication: PRODUCT USED FOR UNKNOWN INDICATION
     Dosage: UNK
     Route: 065
  2. TRAMADOL+PARACETAMOL [Suspect]
     Active Substance: ACETAMINOPHEN\TRAMADOL
     Indication: POSTOPERATIVE ANALGESIA
     Dosage: 2 DOSAGE FORM, ONCE A DAY
     Route: 048
  3. TRAMADOL+PARACETAMOL TABLET [Suspect]
     Active Substance: ACETAMINOPHEN\TRAMADOL
     Indication: POSTOPERATIVE ANALGESIA
     Dosage: 1 DOSAGE FORM, ONCE A DAY
     Route: 048
  4. DOXYCYCLINE. [Concomitant]
     Active Substance: DOXYCYCLINE
     Indication: PRODUCT USED FOR UNKNOWN INDICATION
     Dosage: UNK
     Route: 065

REACTIONS (8)
  - Pruritus [Recovering/Resolving]
  - Infection [Recovering/Resolving]
  - Blister [Recovering/Resolving]
  - Erythema [Recovering/Resolving]
  - Skin texture abnormal [Recovering/Resolving]
  - Rash generalised [Recovering/Resolving]
  - Swelling [Recovering/Resolving]
  - Drug hypersensitivity [Recovering/Resolving]
